FAERS Safety Report 6842620-0 (Version None)
Quarter: 2010Q3

REPORT INFORMATION
  Report Type: 
  Country: None (occurrence: None)
  Receive Date: 20100709
  Receipt Date: 20100628
  Transmission Date: 20110219
  Serious: Yes (Death, Hospitalization)
  Sender: FDA-Public Use
  Company Number: GER/UKI/10/0013907

PATIENT
  Age: 70 Year
  Sex: Female

DRUGS (25)
  1. CIPROFLOXACIN [Suspect]
     Indication: BACTERAEMIA
  2. CITALOPRAM HYDROBROMIDE [Suspect]
     Indication: DEPRESSION
  3. LEVOFLOXACIN [Suspect]
     Indication: BACTERAEMIA
  4. OMEPRAZOLE [Suspect]
     Indication: PRODUCT USED FOR UNKNOWN INDICATION
  5. AMIKACIN [Suspect]
     Indication: BACTERAEMIA
  6. AMITRIPTYLINE HYDROCHLORIDE [Suspect]
     Indication: DEPRESSION
  7. AMPICILLIN [Suspect]
     Indication: BACTERAEMIA
  8. ASPIRIN [Suspect]
     Indication: HYPERTENSION
  9. ASPIRIN [Suspect]
     Indication: MYOCARDIAL ISCHAEMIA
  10. CEFTRIAXONE [Suspect]
     Indication: PNEUMONIA
  11. ENALAPRIL (EANLAPRIL) [Suspect]
     Indication: HYPERTENSION
  12. FUROSEMIDE [Suspect]
     Indication: HYPERTENSION
  13. GLYBURIDE [Suspect]
     Indication: TYPE 2 DIABETES MELLITUS
     Dosage: ORAL
     Route: 048
  14. HYDROCORTONE [Suspect]
     Indication: TOXIC EPIDERMAL NECROLYSIS
  15. IMMUNE GLOBULIN (HUMAN) [Suspect]
     Indication: PRODUCT USED FOR UNKNOWN INDICATION
     Dosage: INTRAVENOUS
     Route: 042
  16. METFORMIN HCL [Suspect]
     Indication: TYPE 2 DIABETES MELLITUS
     Dosage: ORAL
     Route: 048
  17. PIPERACILLIN [Suspect]
     Indication: BACTERAEMIA
  18. SIMVASTATIN [Suspect]
     Indication: HYPERLIPIDAEMIA
  19. TAZOBACTAM [Suspect]
     Indication: PRODUCT USED FOR UNKNOWN INDICATION
  20. THEOPHYLLINE [Suspect]
     Indication: BRONCHITIS CHRONIC
  21. VANCOMYCIN [Suspect]
     Indication: BACTERAEMIA
  22. VERAPAMIL [Suspect]
     Indication: HYPERTENSION
  23. DEXTROSE [Concomitant]
  24. LATANOPROST [Concomitant]
  25. MAGNESIUM SULFATE [Concomitant]

REACTIONS (5)
  - ACUTE RESPIRATORY DISTRESS SYNDROME [None]
  - BACTERIAL INFECTION [None]
  - HAEMORRHAGE INTRACRANIAL [None]
  - HYPOGLYCAEMIA [None]
  - TOXIC EPIDERMAL NECROLYSIS [None]
